FAERS Safety Report 4573917-5 (Version None)
Quarter: 2005Q1

REPORT INFORMATION
  Report Type: 
  Country: None (occurrence: None)
  Receive Date: 20050203
  Receipt Date: 20050127
  Transmission Date: 20050727
  Serious: Yes (Disabling)
  Sender: FDA-Public Use
  Company Number: TCI2003A02528

PATIENT
  Age: 72 Year
  Sex: Male

DRUGS (5)
  1. TAKEPRON               (LANSOPRAZOLE) [Suspect]
     Indication: GASTRIC CANCER
     Dosage: 30 MG (15 MG 2 IN 1 D)
     Route: 048
     Dates: start: 20030616, end: 20030623
  2. TAKEPRON               (LANSOPRAZOLE) [Suspect]
     Indication: GASTRIC ULCER HAEMORRHAGE
     Dosage: 30 MG (15 MG 2 IN 1 D)
     Route: 048
     Dates: start: 20030616, end: 20030623
  3. ACTOS [Concomitant]
  4. GLIMEPIRIDE [Concomitant]
  5. BROTIZOLAM [Concomitant]

REACTIONS (14)
  - ABDOMINAL PAIN UPPER [None]
  - ANURIA [None]
  - ASCITES [None]
  - BLOOD PRESSURE INCREASED [None]
  - BLOOD URINE PRESENT [None]
  - CONDITION AGGRAVATED [None]
  - GASTRIC HAEMORRHAGE [None]
  - GENERALISED OEDEMA [None]
  - HAEMODIALYSIS [None]
  - NEPHRITIS INTERSTITIAL [None]
  - OLIGURIA [None]
  - PLEURAL EFFUSION [None]
  - PROTEIN URINE PRESENT [None]
  - RENAL FAILURE ACUTE [None]
